FAERS Safety Report 4640494-X (Version None)
Quarter: 2005Q2

REPORT INFORMATION
  Report Type: 
  Country: None (occurrence: None)
  Receive Date: 20050419
  Receipt Date: 20050413
  Transmission Date: 20051028
  Serious: Yes (Other)
  Sender: FDA-Public Use
  Company Number: 200510387BWH

PATIENT
  Sex: Male

DRUGS (1)
  1. CIPRO [Suspect]
     Dosage: ORAL
     Route: 048

REACTIONS (4)
  - DRUG INEFFECTIVE [None]
  - LIGAMENT INJURY [None]
  - OEDEMA PERIPHERAL [None]
  - POSTOPERATIVE INFECTION [None]
